FAERS Safety Report 4467918-5 (Version None)
Quarter: 2004Q4

REPORT INFORMATION
  Report Type: 
  Country: None (occurrence: None)
  Receive Date: 20041004
  Receipt Date: 20040827
  Transmission Date: 20050328
  Serious: Yes (Hospitalization)
  Sender: FDA-Public Use
  Company Number: 8797

PATIENT
  Age: 64 Year
  Sex: Male

DRUGS (2)
  1. METHOTREXATE [Suspect]
     Indication: RHEUMATOID ARTHRITIS
     Dosage: 6 MG WEEKLY
     Dates: start: 19980101, end: 19981001
  2. SULFAMETHOXAZOLE + TRIMETHOPRIM [Suspect]
     Indication: PNEUMOCYSTIS CARINII PNEUMONIA
     Dates: start: 19981001

REACTIONS (6)
  - BONE MARROW DEPRESSION [None]
  - DRUG INTERACTION [None]
  - INFLUENZA LIKE ILLNESS [None]
  - PANCYTOPENIA [None]
  - PNEUMOCYSTIS CARINII PNEUMONIA [None]
  - RESPIRATORY FAILURE [None]
